FAERS Safety Report 10770936 (Version 2)
Quarter: 2015Q1

REPORT INFORMATION
  Report Type: Spontaneous
  Country: US (occurrence: US)
  Receive Date: 20150206
  Receipt Date: 20150212
  Transmission Date: 20150721
  Serious: No
  Sender: FDA-Public Use
  Company Number: US-BAYER-2015-017966

PATIENT
  Age: 52 Year
  Sex: Female

DRUGS (3)
  1. GADAVIST [Suspect]
     Active Substance: GADOBUTROL
     Indication: NUCLEAR MAGNETIC RESONANCE IMAGING
     Dosage: 9 ML ONCE
     Route: 042
     Dates: start: 20150117, end: 20150117
  2. GADAVIST [Suspect]
     Active Substance: GADOBUTROL
     Indication: HAEMORRHAGE
  3. GADAVIST [Suspect]
     Active Substance: GADOBUTROL
     Indication: UTERINE LEIOMYOMA

REACTIONS (2)
  - Throat irritation [Recovered/Resolved]
  - Pruritus [Recovered/Resolved]

NARRATIVE: CASE EVENT DATE: 20150117
